FAERS Safety Report 9665285 (Version 3)
Quarter: 2013Q4

REPORT INFORMATION
  Report Type: Report from Study
  Country: GB (occurrence: GB)
  Receive Date: 20131101
  Receipt Date: 20131105
  Transmission Date: 20140711
  Serious: Yes (Death, Life-Threatening, Other)
  Sender: FDA-Public Use
  Company Number: GB-ROCHE-1273958

PATIENT
  Age: 76 Year
  Sex: Female

DRUGS (10)
  1. RHUPH20/RITUXIMAB [Suspect]
     Indication: DIFFUSE LARGE B-CELL LYMPHOMA
     Dosage: LAST DOSE PRIOR TO EVENT:27/AUG/2013
     Route: 058
     Dates: start: 20130806
  2. CYCLOPHOSPHAMIDE [Suspect]
     Indication: DIFFUSE LARGE B-CELL LYMPHOMA
     Route: 065
  3. DOXORUBICIN [Suspect]
     Indication: DIFFUSE LARGE B-CELL LYMPHOMA
     Route: 065
  4. VINCRISTINE [Suspect]
     Indication: DIFFUSE LARGE B-CELL LYMPHOMA
     Route: 065
  5. PREDNISONE [Suspect]
     Indication: DIFFUSE LARGE B-CELL LYMPHOMA
     Route: 065
  6. LEVOTHYROX [Concomitant]
     Route: 048
     Dates: start: 19930219, end: 20130917
  7. PARACETAMOL [Concomitant]
     Route: 048
     Dates: start: 20110209, end: 20130917
  8. CALCICHEW D3 [Concomitant]
     Dosage: 2 TABLET
     Route: 048
     Dates: start: 20110812, end: 20130917
  9. INSULIN [Concomitant]
     Dosage: 44 UNITS ONCE DAILY
     Route: 058
     Dates: start: 20101122, end: 20130917
  10. ZOLEDRONATE [Concomitant]
     Dosage: AS NEEDED
     Route: 042
     Dates: start: 20110812

REACTIONS (3)
  - Respiratory failure [Fatal]
  - Hypoxia [Recovered/Resolved]
  - Pneumothorax [Recovered/Resolved]
